FAERS Safety Report 6059172-8 (Version None)
Quarter: 2009Q1

REPORT INFORMATION
  Report Type: 
  Country: None (occurrence: None)
  Receive Date: 20090127
  Receipt Date: 20090127
  Transmission Date: 20090719
  Serious: Yes (Life-Threatening, Hospitalization)
  Sender: FDA-Public Use
  Company Number: None

PATIENT
  Age: 68 Year
  Sex: Male
  Weight: 80.4 kg

DRUGS (1)
  1. IFOSFAMIDE [Suspect]
     Indication: SARCOMA
     Dosage: 9000 MG 24 HOUR INFUSION IV DRIP  10.5 HOURS
     Route: 041
     Dates: start: 20090107, end: 20090107

REACTIONS (3)
  - AGITATION [None]
  - CONFUSIONAL STATE [None]
  - NEUROTOXICITY [None]
